FAERS Safety Report 21754762 (Version 2)
Quarter: 2023Q1

REPORT INFORMATION
  Report Type: Spontaneous
  Country: US (occurrence: US)
  Receive Date: 20221220
  Receipt Date: 20230105
  Transmission Date: 20230417
  Serious: Yes (Hospitalization)
  Sender: FDA-Public Use
  Company Number: US-LUPIN PHARMACEUTICALS INC.-2022-14484

PATIENT

DRUGS (1)
  1. BOSENTAN [Suspect]
     Active Substance: BOSENTAN
     Indication: Pulmonary hypertension
     Dosage: 32 MG, 32MG, FREQUENCY- 2.5 ML TWICE DAILY, ROUTE- G-TUBE
     Route: 065

REACTIONS (2)
  - Cardiac disorder [Unknown]
  - Incorrect route of product administration [Unknown]
